FAERS Safety Report 6694268-9 (Version None)
Quarter: 2010Q2

REPORT INFORMATION
  Report Type: 
  Country: None (occurrence: None)
  Receive Date: 20100421
  Receipt Date: 20100412
  Transmission Date: 20101027
  Serious: Yes (Other)
  Sender: FDA-Public Use
  Company Number: 10-000542

PATIENT
  Age: 21 Year
  Sex: Female
  Weight: 54.4 kg

DRUGS (2)
  1. LOESTRIN 24 FE [Suspect]
     Indication: CONTRACEPTION
     Dosage: 20/1000 UG, QD, ORAL
     Route: 048
     Dates: start: 20100301, end: 20100405
  2. MOTRIN [Concomitant]

REACTIONS (4)
  - COLOUR BLINDNESS [None]
  - MULTIPLE SCLEROSIS [None]
  - NEUROPATHY PERIPHERAL [None]
  - VISUAL ACUITY REDUCED [None]
